FAERS Safety Report 9322899 (Version 4)
Quarter: 2014Q1

REPORT INFORMATION
  Report Type: Spontaneous
  Country: US (occurrence: US)
  Receive Date: 20130601
  Receipt Date: 20140108
  Transmission Date: 20141002
  Serious: Yes (Hospitalization, Disabling, Other)
  Sender: FDA-Public Use
  Company Number: US-ASTRAZENECA-2013SE38651

PATIENT
  Age: 716 Month
  Sex: Female
  Weight: 79.4 kg

DRUGS (17)
  1. NEXIUM [Suspect]
     Indication: GASTROOESOPHAGEAL REFLUX DISEASE
     Route: 048
     Dates: start: 1995, end: 2006
  2. NEXIUM [Suspect]
     Indication: GASTROOESOPHAGEAL REFLUX DISEASE
     Route: 048
     Dates: start: 1995, end: 2000
  3. NEXIUM [Suspect]
     Indication: GASTROOESOPHAGEAL REFLUX DISEASE
     Route: 048
     Dates: start: 20060214
  4. PRILOSEC [Suspect]
     Indication: GASTROOESOPHAGEAL REFLUX DISEASE
     Route: 048
     Dates: start: 2000, end: 2013
  5. PRILOSEC [Suspect]
     Indication: GASTROOESOPHAGEAL REFLUX DISEASE
     Dosage: 20 MG 1-2 DAILY
     Route: 048
     Dates: start: 200609, end: 201305
  6. PRILOSEC [Suspect]
     Indication: GASTROOESOPHAGEAL REFLUX DISEASE
     Dosage: GENERIC
     Route: 048
     Dates: start: 20111007
  7. PROTONIX [Concomitant]
     Indication: GASTROOESOPHAGEAL REFLUX DISEASE
     Dates: start: 201305
  8. LISINOPRIL [Concomitant]
     Indication: HYPERTENSION
     Route: 048
  9. ZOCOR [Concomitant]
     Indication: BLOOD CHOLESTEROL ABNORMAL
     Dates: start: 20130510
  10. LAXIES [Concomitant]
     Indication: FLUID RETENTION
  11. FISH OIL [Concomitant]
  12. ACTOS [Concomitant]
  13. VERAPAMIL [Concomitant]
     Dates: start: 20031113
  14. IBUPROFEN [Concomitant]
     Dates: start: 20031113
  15. ALENDRONATE [Concomitant]
     Indication: OSTEOPOROSIS
  16. LEVOTHYROXINE [Concomitant]
     Indication: THYROID DISORDER
  17. FENOFIBRATE [Concomitant]
     Indication: HYPERLIPIDAEMIA

REACTIONS (11)
  - Femur fracture [Unknown]
  - Thyroid disorder [Unknown]
  - Diabetes mellitus [Unknown]
  - Fall [Unknown]
  - Ankle fracture [Unknown]
  - Osteoporosis [Unknown]
  - Wrist fracture [Unknown]
  - Radius fracture [Unknown]
  - Vitamin D deficiency [Unknown]
  - Bone disorder [Unknown]
  - Osteopenia [Unknown]
